FAERS Safety Report 5905128-2 (Version None)
Quarter: 2008Q3

REPORT INFORMATION
  Report Type: 
  Country: None (occurrence: None)
  Receive Date: 20080909
  Receipt Date: 20071023
  Transmission Date: 20090109
  Serious: Yes (Hospitalization)
  Sender: FDA-Public Use
  Company Number: 163-20785-07100042

PATIENT
  Age: 76 Year
  Sex: Male

DRUGS (22)
  1. THALOMID [Suspect]
     Indication: MULTIPLE MYELOMA
     Dosage: 200 MG, 4 IN 1 D, ORAL
     Route: 048
     Dates: start: 20070927, end: 20070901
  2. COUMADIN [Concomitant]
  3. ZOMETA [Concomitant]
  4. ARANESP [Concomitant]
  5. SINEMET [Concomitant]
  6. REQUIP [Concomitant]
  7. HYTRIN [Concomitant]
  8. PROSCAR [Concomitant]
  9. LASIX [Concomitant]
  10. METOPROLOL TARTRATE [Concomitant]
  11. NORVASC [Concomitant]
  12. PRILOSEC [Concomitant]
  13. CARAFATE [Concomitant]
  14. CALCIUM CARBONATE (CALCIUM CARBONATE) [Concomitant]
  15. COLACE (DOCUSATE SODIUM) [Concomitant]
  16. IRON (IRON) [Concomitant]
  17. ASCORBIC ACID [Concomitant]
  18. MULTIVITAMIN [Concomitant]
  19. FENTANYL-100 [Concomitant]
  20. INSULIN (INSULIN) [Concomitant]
  21. BACTRIM [Concomitant]
  22. DEXAMETHASONE TAB [Concomitant]

REACTIONS (1)
  - PULMONARY EMBOLISM [None]
